FAERS Safety Report 9371496 (Version 1)
Quarter: 2013Q2

REPORT INFORMATION
  Report Type: Spontaneous
  Country: US (occurrence: None)
  Receive Date: 20130626
  Receipt Date: 20130626
  Transmission Date: 20140414
  Serious: Yes (Hospitalization)
  Sender: FDA-Public Use
  Company Number: None

PATIENT
  Age: 54 Year
  Sex: Female
  Weight: 108 kg

DRUGS (2)
  1. GOLIMUMAB [Suspect]
     Indication: RHEUMATOID ARTHRITIS
     Route: 058
  2. METHOTREXATE [Suspect]
     Indication: RHEUMATOID ARTHRITIS

REACTIONS (14)
  - Cellulitis [None]
  - Haemodynamic instability [None]
  - Respiratory failure [None]
  - Mental status changes [None]
  - Blood creatinine increased [None]
  - Arthritis bacterial [None]
  - Sepsis [None]
  - Endocarditis staphylococcal [None]
  - Embolic stroke [None]
  - Clostridium difficile infection [None]
  - Device related infection [None]
  - Osteomyelitis [None]
  - Pneumonia pseudomonas aeruginosa [None]
  - Cardiac infection [None]
